FAERS Safety Report 10684384 (Version 1)
Quarter: 2014Q4

REPORT INFORMATION
  Report Type: Spontaneous
  Country: GB (occurrence: GB)
  Receive Date: 20141231
  Receipt Date: 20141231
  Transmission Date: 20150529
  Serious: Yes (Hospitalization)
  Sender: FDA-Public Use
  Company Number: GB-AMGEN-GBRSP2014101631

PATIENT
  Age: 57 Year
  Sex: Female

DRUGS (18)
  1. PROLIA [Suspect]
     Active Substance: DENOSUMAB
     Indication: OSTEOPOROSIS
     Dosage: 60 MG, UNK
     Route: 058
     Dates: start: 20141201
  2. SUMATRIPTAN. [Concomitant]
     Active Substance: SUMATRIPTAN
  3. BISOPROLOL [Concomitant]
     Active Substance: BISOPROLOL
  4. GLYCERYL TRINITRATE [Concomitant]
     Active Substance: NITROGLYCERIN
  5. MOVICOL                            /01749801/ [Concomitant]
  6. PARACETAMOL [Concomitant]
     Active Substance: ACETAMINOPHEN
  7. RITUXIMAB [Concomitant]
     Active Substance: RITUXIMAB
  8. SPIRONOLACTONE. [Concomitant]
     Active Substance: SPIRONOLACTONE
  9. ALENDRONIC ACID [Concomitant]
     Active Substance: ALENDRONIC ACID
     Dosage: UNK
  10. CARBAMAZEPINE. [Concomitant]
     Active Substance: CARBAMAZEPINE
     Dosage: UNK UNK, BID
  11. DOXAZOSIN [Concomitant]
     Active Substance: DOXAZOSIN\DOXAZOSIN MESYLATE
  12. ONDANSETRON [Concomitant]
     Active Substance: ONDANSETRON
  13. SALBUTAMOL [Concomitant]
     Active Substance: ALBUTEROL
  14. FUROSEMIDE. [Concomitant]
     Active Substance: FUROSEMIDE
  15. TRAMADOL [Concomitant]
     Active Substance: TRAMADOL
  16. LOSARTAN [Concomitant]
     Active Substance: LOSARTAN
  17. SERETIDE [Concomitant]
     Active Substance: FLUTICASONE FUROATE\SALMETEROL XINAFOATE
  18. CALCICHEW D3 FORTE [Concomitant]
     Active Substance: CALCIUM\CHOLECALCIFEROL
     Dosage: UNK UNK, BID

REACTIONS (3)
  - Paraesthesia oral [Unknown]
  - Dyskinesia [Unknown]
  - Hypocalcaemia [Not Recovered/Not Resolved]

NARRATIVE: CASE EVENT DATE: 20141209
